FAERS Safety Report 17869802 (Version 1)
Quarter: 2020Q2

REPORT INFORMATION
  Report Type: Spontaneous
  Country: SA (occurrence: SA)
  Receive Date: 20200608
  Receipt Date: 20200608
  Transmission Date: 20200714
  Serious: Yes (Life-Threatening, Other)
  Sender: FDA-Public Use
  Company Number: SA-LUPIN PHARMACEUTICALS INC.-2020-02632

PATIENT
  Age: 33 Year
  Sex: Female

DRUGS (9)
  1. OSELTAMIVIR [Suspect]
     Active Substance: OSELTAMIVIR
     Indication: MIDDLE EAST RESPIRATORY SYNDROME
     Dosage: UNK
     Route: 042
  2. IMIPENEM [Suspect]
     Active Substance: IMIPENEM
     Indication: MIDDLE EAST RESPIRATORY SYNDROME
     Dosage: UNK
     Route: 042
  3. AZITHROMYCIN ANHYDROUS. [Suspect]
     Active Substance: AZITHROMYCIN ANHYDROUS
     Indication: CORONAVIRUS INFECTION
  4. OSELTAMIVIR [Suspect]
     Active Substance: OSELTAMIVIR
     Indication: CORONAVIRUS INFECTION
  5. VANCOMYCIN [Suspect]
     Active Substance: VANCOMYCIN
     Indication: MIDDLE EAST RESPIRATORY SYNDROME
     Dosage: UNK
     Route: 042
  6. IMIPENEM [Suspect]
     Active Substance: IMIPENEM
     Indication: CORONAVIRUS INFECTION
  7. VANCOMYCIN [Suspect]
     Active Substance: VANCOMYCIN
     Indication: CORONAVIRUS INFECTION
  8. AZITHROMYCIN ANHYDROUS. [Suspect]
     Active Substance: AZITHROMYCIN ANHYDROUS
     Indication: MIDDLE EAST RESPIRATORY SYNDROME
     Dosage: UNK
     Route: 042
  9. DEXAMETHASONE. [Suspect]
     Active Substance: DEXAMETHASONE
     Indication: PROPHYLAXIS
     Dosage: UNK (ADMINISTERED TWICE)
     Route: 065

REACTIONS (3)
  - Premature delivery [Unknown]
  - Maternal exposure during pregnancy [Unknown]
  - Respiratory failure [Unknown]
